FAERS Safety Report 4591752-9 (Version None)
Quarter: 2005Q1

REPORT INFORMATION
  Report Type: 
  Country: None (occurrence: None)
  Receive Date: 20050218
  Receipt Date: 20050215
  Transmission Date: 20050727
  Serious: No
  Sender: FDA-Public Use
  Company Number: 05H-163-0287090-00

PATIENT
  Sex: Male

DRUGS (1)
  1. TPN ELECTROLYTES IN PLASTIC CONTAINER [Suspect]
     Indication: NUTRITIONAL SUPPORT
     Dosage: ONCE, INTRAVENOUS
     Route: 042
     Dates: start: 20041219, end: 20041219

REACTIONS (5)
  - DEVICE MALFUNCTION [None]
  - FLUID OVERLOAD [None]
  - MEDICAL DEVICE COMPLICATION [None]
  - MEDICATION ERROR [None]
  - OVERDOSE [None]
